FAERS Safety Report 5401605-1 (Version None)
Quarter: 2007Q3

REPORT INFORMATION
  Report Type: 
  Country: None (occurrence: None)
  Receive Date: 20070731
  Receipt Date: 20070719
  Transmission Date: 20080115
  Serious: Yes (Other)
  Sender: FDA-Public Use
  Company Number: IE-PFIZER INC-2007029930

PATIENT
  Sex: Female

DRUGS (1)
  1. EPANUTIN SUSPENSION [Suspect]
     Indication: EPILEPSY

REACTIONS (2)
  - CEREBROVASCULAR ACCIDENT [None]
  - GASTROSTOMY TUBE INSERTION [None]
